FAERS Safety Report 9164795 (Version 5)
Quarter: 2014Q2

REPORT INFORMATION
  Report Type: Spontaneous
  Country: US (occurrence: US)
  Receive Date: 20130315
  Receipt Date: 20140520
  Transmission Date: 20141212
  Serious: Yes (Other)
  Sender: FDA-Public Use
  Company Number: US-PFIZER INC-2013084551

PATIENT
  Age: 47 Year
  Sex: Female
  Weight: 136 kg

DRUGS (11)
  1. LYRICA [Suspect]
     Indication: NEUROPATHY PERIPHERAL
     Dosage: 200 MG, 3X/DAY
     Route: 048
     Dates: start: 201110, end: 201302
  2. LYRICA [Suspect]
     Indication: NEUROPATHY PERIPHERAL
     Dosage: 200 MG, 3X/DAY
     Route: 048
     Dates: end: 2013
  3. LYRICA [Suspect]
     Indication: RESTLESS LEGS SYNDROME
     Dosage: 200 MG, 3X/DAY
     Dates: start: 2012
  4. MAXZIDE [Concomitant]
     Indication: HYPERTENSION
     Dosage: UNK
  5. ROPINIROLE [Concomitant]
     Indication: RESTLESS LEGS SYNDROME
     Dosage: UNK
  6. PERCOCET [Concomitant]
     Dosage: UNK
  7. WELLBUTRIN XL [Concomitant]
     Dosage: UNK
  8. CELEXA [Concomitant]
     Dosage: UNK
  9. METFORMIN [Concomitant]
     Dosage: UNK
  10. ZOLOFT [Concomitant]
     Indication: DEPRESSION
     Dosage: UNK
  11. REQUIP [Concomitant]
     Indication: RESTLESS LEGS SYNDROME
     Dosage: 1 MG, 2X/DAY

REACTIONS (12)
  - Abasia [Unknown]
  - Constipation [Not Recovered/Not Resolved]
  - Vision blurred [Unknown]
  - Weight decreased [Not Recovered/Not Resolved]
  - Discomfort [Not Recovered/Not Resolved]
  - Pain in extremity [Not Recovered/Not Resolved]
  - Agitation [Unknown]
  - Pain [Unknown]
  - Fatigue [Unknown]
  - Amnesia [Unknown]
  - Swelling face [Unknown]
  - Local swelling [Unknown]
